FAERS Safety Report 7795859-4 (Version None)
Quarter: 2011Q4

REPORT INFORMATION
  Report Type: 
  Country: None (occurrence: None)
  Receive Date: 20111004
  Receipt Date: 20110923
  Transmission Date: 20120403
  Serious: Yes (Other)
  Sender: FDA-Public Use
  Company Number: US-JNJFOC-20110905242

PATIENT
  Sex: Female
  Weight: 98.88 kg

DRUGS (5)
  1. INFLIXIMAB, RECOMBINANT [Suspect]
     Indication: CROHN'S DISEASE
     Route: 042
  2. INFLIXIMAB, RECOMBINANT [Suspect]
     Route: 042
     Dates: start: 20010220
  3. MESALAMINE [Concomitant]
     Indication: CROHN'S DISEASE
  4. ACETAMINOPHEN [Concomitant]
     Indication: PREMEDICATION
  5. ANTIHISTAMINES [Concomitant]
     Indication: PREMEDICATION

REACTIONS (1)
  - INTESTINAL STENOSIS [None]
